FAERS Safety Report 18630789 (Version 1)
Quarter: 2020Q4

REPORT INFORMATION
  Report Type: Spontaneous
  Country: US (occurrence: US)
  Receive Date: 20201217
  Receipt Date: 20201217
  Transmission Date: 20210114
  Serious: No
  Sender: FDA-Public Use
  Company Number: US-ENDO PHARMACEUTICALS INC-2019-110884

PATIENT
  Age: 48 Year
  Sex: Male
  Weight: 96.15 kg

DRUGS (3)
  1. XIAFLEX [Suspect]
     Active Substance: COLLAGENASE CLOSTRIDIUM HISTOLYTICUM
     Indication: PEYRONIE^S DISEASE
     Dosage: UNK UNKNOWN, UNKNOWN
     Route: 065
  2. XIAFLEX [Suspect]
     Active Substance: COLLAGENASE CLOSTRIDIUM HISTOLYTICUM
     Indication: SCAR
     Dosage: UNK UNKNOWN, CYCLE 1: INJECTION 1 AND 2
     Route: 065
     Dates: start: 201911
  3. XIAFLEX [Suspect]
     Active Substance: COLLAGENASE CLOSTRIDIUM HISTOLYTICUM
     Dosage: UNK UNKNOWN, RECEIVED A TOTAL OF 10 INJECTIONS
     Route: 065

REACTIONS (4)
  - Off label use [Not Recovered/Not Resolved]
  - Condition aggravated [Unknown]
  - Peyronie^s disease [Unknown]
  - Drug ineffective [Unknown]

NARRATIVE: CASE EVENT DATE: 201911
